FAERS Safety Report 5252488-4 (Version None)
Quarter: 2007Q1

REPORT INFORMATION
  Report Type: 
  Country: None (occurrence: None)
  Receive Date: 20070301
  Receipt Date: 20061215
  Transmission Date: 20070707
  Serious: Yes (Hospitalization, Other)
  Sender: FDA-Public Use
  Company Number: US-BRISTOL-MYERS SQUIBB COMPANY-13615117

PATIENT

DRUGS (1)
  1. ERBITUX [Suspect]
     Route: 042
     Dates: start: 20061201, end: 20061201

REACTIONS (1)
  - ANAPHYLACTIC REACTION [None]
